FAERS Safety Report 14772839 (Version 3)
Quarter: 2019Q1

REPORT INFORMATION
  Report Type: Spontaneous
  Country: US (occurrence: US)
  Receive Date: 20180418
  Receipt Date: 20190131
  Transmission Date: 20190417
  Serious: No
  Sender: FDA-Public Use
  Company Number: US-PFIZER INC-2018154923

PATIENT
  Age: 56 Year
  Sex: Female
  Weight: 87.53 kg

DRUGS (4)
  1. BACITRACIN ZINC. [Suspect]
     Active Substance: BACITRACIN ZINC
     Dosage: UNK
  2. POLYMYXIN B SULFATE. [Suspect]
     Active Substance: POLYMYXIN B SULFATE
     Dosage: UNK
  3. SUDAFED [Suspect]
     Active Substance: PSEUDOEPHEDRINE HYDROCHLORIDE
     Dosage: UNK
  4. BACITRACIN. [Suspect]
     Active Substance: BACITRACIN
     Dosage: UNK

REACTIONS (1)
  - Drug hypersensitivity [Unknown]
